FAERS Safety Report 7280489-3 (Version None)
Quarter: 2011Q1

REPORT INFORMATION
  Report Type: 
  Country: None (occurrence: None)
  Receive Date: 20110208
  Receipt Date: 20110204
  Transmission Date: 20110831
  Serious: Yes (Other)
  Sender: FDA-Public Use
  Company Number: GB-B.I. PHARMACEUTICALS,INC./RIDGEFIELD-2010-UK-00993UK

PATIENT
  Sex: Female

DRUGS (4)
  1. FERROUS SULFATE TAB [Concomitant]
  2. DICLOSENAC [Concomitant]
     Dosage: PRN
  3. VIRAMUNE [Suspect]
     Indication: HIV INFECTION
     Dosage: 400 MG
     Route: 048
     Dates: start: 20040101
  4. METAZAPINE [Concomitant]

REACTIONS (1)
  - PORTAL VEIN THROMBOSIS [None]
